FAERS Safety Report 9016721 (Version 1)
Quarter: 2013Q1

REPORT INFORMATION
  Report Type: Spontaneous
  Country: ZA (occurrence: ZA)
  Receive Date: 20130116
  Receipt Date: 20130116
  Transmission Date: 20140127
  Serious: Yes (Other)
  Sender: FDA-Public Use
  Company Number: ZA-JNJFOC-20110404842

PATIENT
  Sex: 0

DRUGS (2)
  1. KETOCONAZOLE [Suspect]
     Indication: PRODUCT USED FOR UNKNOWN INDICATION
     Route: 065
  2. DIDANOSINE [Interacting]
     Indication: ANTIRETROVIRAL THERAPY
     Route: 065

REACTIONS (1)
  - Drug interaction [Unknown]
